FAERS Safety Report 12341280 (Version 2)
Quarter: 2016Q2

REPORT INFORMATION
  Report Type: Spontaneous
  Country: JP (occurrence: JP)
  Receive Date: 20160506
  Receipt Date: 20160513
  Transmission Date: 20160815
  Serious: Yes (Hospitalization)
  Sender: FDA-Public Use
  Company Number: JP-ELI_LILLY_AND_COMPANY-JP201603011089

PATIENT
  Age: 35 Year
  Sex: Female
  Weight: 72 kg

DRUGS (4)
  1. TRULICITY [Suspect]
     Active Substance: DULAGLUTIDE
     Indication: TYPE 2 DIABETES MELLITUS
     Dosage: 0.75 MG, WEEKLY (1/W)
     Route: 058
     Dates: start: 20160112
  2. INSULIN GLARGINE [Suspect]
     Active Substance: INSULIN GLARGINE
     Indication: TYPE 2 DIABETES MELLITUS
     Dosage: 20 IU, QD
     Route: 058
     Dates: start: 20151230, end: 20160306
  3. APIDRA SOLOSTAR [Suspect]
     Active Substance: INSULIN GLULISINE
     Indication: TYPE 2 DIABETES MELLITUS
     Dosage: 4 IU, TID
     Route: 058
     Dates: start: 20151230
  4. INSULIN GLARGINE [Suspect]
     Active Substance: INSULIN GLARGINE
     Dosage: 16 IU, QD
     Route: 058
     Dates: start: 20160307, end: 20160314

REACTIONS (2)
  - Hypoglycaemic coma [Recovered/Resolved]
  - Anti-insulin antibody increased [Unknown]

NARRATIVE: CASE EVENT DATE: 20160315
